FAERS Safety Report 20091172 (Version 1)
Quarter: 2021Q4

REPORT INFORMATION
  Report Type: Report from Study
  Country: FR (occurrence: FR)
  Receive Date: 20211119
  Receipt Date: 20211119
  Transmission Date: 20220303
  Serious: Yes (Hospitalization, Other)
  Sender: FDA-Public Use
  Company Number: FR-ASTELLAS-2018US027250

PATIENT
  Sex: Female
  Weight: 68 kg

DRUGS (10)
  1. TACROLIMUS [Suspect]
     Active Substance: TACROLIMUS
     Indication: Immunosuppressant drug therapy
     Dosage: 8 MILLIGRAM, QD
     Route: 048
     Dates: start: 20170121, end: 20170126
  2. TACROLIMUS [Suspect]
     Active Substance: TACROLIMUS
     Dosage: 15 MILLIGRAM, QD
     Route: 048
     Dates: start: 20170207, end: 20170215
  3. TACROLIMUS [Suspect]
     Active Substance: TACROLIMUS
     Dosage: 12 MILLIGRAM, QD
     Route: 048
     Dates: start: 20170118, end: 20170120
  4. TACROLIMUS [Suspect]
     Active Substance: TACROLIMUS
     Dosage: 14 MILLIGRAM, QD
     Route: 048
     Dates: start: 20170201, end: 20170203
  5. TACROLIMUS [Suspect]
     Active Substance: TACROLIMUS
     Dosage: 13 MILLIGRAM, QD
     Route: 048
     Dates: start: 20170127, end: 20170131
  6. TACROLIMUS [Suspect]
     Active Substance: TACROLIMUS
     Dosage: 12 MILLIGRAM, QD
     Route: 048
     Dates: start: 20170316, end: 20170329
  7. CELLCEPT [Suspect]
     Active Substance: MYCOPHENOLATE MOFETIL\MYCOPHENOLATE MOFETIL HYDROCHLORIDE
     Indication: Immunosuppressant drug therapy
     Dosage: 2000 MILLIGRAM, QD
     Route: 048
     Dates: start: 20170207, end: 20170222
  8. CELLCEPT [Suspect]
     Active Substance: MYCOPHENOLATE MOFETIL\MYCOPHENOLATE MOFETIL HYDROCHLORIDE
     Dosage: 3000 MILLIGRAM, QD
     Route: 048
     Dates: start: 20170126, end: 20170206
  9. CELLCEPT [Suspect]
     Active Substance: MYCOPHENOLATE MOFETIL\MYCOPHENOLATE MOFETIL HYDROCHLORIDE
     Dosage: 1000 MILLIGRAM, QD
     Route: 048
     Dates: start: 20170223, end: 20170224
  10. NULOJIX [Concomitant]
     Active Substance: BELATACEPT
     Indication: Immunosuppression
     Dosage: 327 MILLIGRAM, QD
     Route: 048
     Dates: start: 20170208, end: 20170208

REACTIONS (4)
  - Renal tubular necrosis [Recovered/Resolved]
  - Diarrhoea [Recovered/Resolved]
  - Toxicity to various agents [Recovered/Resolved]
  - Overdose [Unknown]

NARRATIVE: CASE EVENT DATE: 20170118
